FAERS Safety Report 4649746-0 (Version None)
Quarter: 2005Q2

REPORT INFORMATION
  Report Type: 
  Country: None (occurrence: None)
  Receive Date: 20050502
  Receipt Date: 20050420
  Transmission Date: 20051028
  Serious: Yes (Hospitalization)
  Sender: FDA-Public Use
  Company Number: US-BRISTOL-MYERS SQUIBB COMPANY-12940730

PATIENT
  Age: 43 Year
  Sex: Female
  Weight: 43 kg

DRUGS (3)
  1. WARFARIN SODIUM [Suspect]
  2. PAXIL [Interacting]
     Indication: DEPRESSION
     Dosage: 10 MG (2002), INCREASED TO 20 MG FOR APPROXIMATELY 1 YR, FOLLOWED BY 10 MG THEN 5 MG AND STOPPING
     Route: 048
     Dates: start: 20020101
  3. PAXIL CR [Interacting]
     Indication: DEPRESSION
     Route: 048

REACTIONS (7)
  - AGGRESSION [None]
  - ANXIETY [None]
  - DRUG INTERACTION [None]
  - OVERDOSE [None]
  - SELF-INJURIOUS IDEATION [None]
  - SLEEP DISORDER [None]
  - WEIGHT INCREASED [None]
